FAERS Safety Report 13273546 (Version 4)
Quarter: 2017Q4

REPORT INFORMATION
  Report Type: Spontaneous
  Country: JP (occurrence: JP)
  Receive Date: 20170227
  Receipt Date: 20171204
  Transmission Date: 20180320
  Serious: Yes (Death)
  Sender: FDA-Public Use
  Company Number: JP-ACTELION-A-CH2017-150253

PATIENT
  Age: 7 Month
  Sex: Male
  Weight: 3.2 kg

DRUGS (38)
  1. CEFAZOLIN NA [Concomitant]
     Active Substance: CEFAZOLIN SODIUM
  2. BOSMIN [Concomitant]
     Active Substance: EPINEPHRINE
  3. UPTRAVI [Suspect]
     Active Substance: SELEXIPAG
     Dosage: 0.04 MG, QD
     Route: 048
     Dates: start: 20161201, end: 20161201
  4. UPTRAVI [Suspect]
     Active Substance: SELEXIPAG
     Dosage: 0.08 MG, QD
     Route: 048
     Dates: start: 20161203, end: 20161203
  5. UPTRAVI [Suspect]
     Active Substance: SELEXIPAG
     Dosage: 0.12 MG, QD
     Route: 048
     Dates: start: 20161205, end: 20161211
  6. UPTRAVI [Suspect]
     Active Substance: SELEXIPAG
     Dosage: 0.28 MG, QD
     Route: 048
     Dates: start: 20161220, end: 20161220
  7. UPTRAVI [Suspect]
     Active Substance: SELEXIPAG
     Dosage: 0.3 MG, QD
     Route: 048
     Dates: start: 20161221, end: 20161226
  8. UPTRAVI [Suspect]
     Active Substance: SELEXIPAG
     Dosage: 0.32 MG, QD
     Route: 048
     Dates: start: 20161227, end: 20161229
  9. UPTRAVI [Suspect]
     Active Substance: SELEXIPAG
     Dosage: 0.36 MG, QD
     Route: 048
     Dates: start: 20170112, end: 20170116
  10. LASIX [Concomitant]
     Active Substance: FUROSEMIDE
  11. CERCINE [Concomitant]
     Active Substance: DIAZEPAM
  12. OXYGEN. [Concomitant]
     Active Substance: OXYGEN
  13. UPTRAVI [Suspect]
     Active Substance: SELEXIPAG
     Indication: PULMONARY ARTERIAL HYPERTENSION
     Dosage: 0.008 MG, QD
     Route: 048
     Dates: start: 20161124, end: 20161127
  14. UPTRAVI [Suspect]
     Active Substance: SELEXIPAG
     Dosage: 0.06 MG, QD
     Route: 048
     Dates: start: 20161202, end: 20161202
  15. UPTRAVI [Suspect]
     Active Substance: SELEXIPAG
     Dosage: 0.22 MG, QD
     Route: 048
     Dates: start: 20161217, end: 20161217
  16. UPTRAVI [Suspect]
     Active Substance: SELEXIPAG
     Dosage: 0.24 MG, QD
     Route: 048
     Dates: start: 20161218, end: 20161218
  17. UPTRAVI [Suspect]
     Active Substance: SELEXIPAG
     Dosage: 0.37 MG, QD
     Route: 048
     Dates: start: 20170117, end: 20170203
  18. WARFARIN [Concomitant]
     Active Substance: WARFARIN
  19. UPTRAVI [Suspect]
     Active Substance: SELEXIPAG
     Dosage: 0.02 MG, QD
     Route: 048
     Dates: start: 20161129, end: 20161130
  20. UPTRAVI [Suspect]
     Active Substance: SELEXIPAG
     Dosage: 0.1 MG, QD
     Route: 048
     Dates: start: 20161204, end: 20161204
  21. UPTRAVI [Suspect]
     Active Substance: SELEXIPAG
     Dosage: 0.14 MG, QD
     Route: 048
     Dates: start: 20161212, end: 20161213
  22. ALDACTONE A [Concomitant]
     Active Substance: SPIRONOLACTONE
  23. MORPHINE HYDROCHLORIDE [Concomitant]
     Active Substance: MORPHINE HYDROCHLORIDE
  24. PRECEDEX [Concomitant]
     Active Substance: DEXMEDETOMIDINE HYDROCHLORIDE
  25. UPTRAVI [Suspect]
     Active Substance: SELEXIPAG
     Dosage: 0.16 MG, QD
     Route: 048
     Dates: start: 20161214, end: 20161214
  26. UPTRAVI [Suspect]
     Active Substance: SELEXIPAG
     Dosage: 0.18 MG, QD
     Route: 048
     Dates: start: 20161215, end: 20161215
  27. OPSUMIT [Concomitant]
     Active Substance: MACITENTAN
  28. RIZABEN [Concomitant]
     Active Substance: TRANILAST
  29. REVATIO [Concomitant]
     Active Substance: SILDENAFIL CITRATE
  30. UPTRAVI [Suspect]
     Active Substance: SELEXIPAG
     Dosage: 0.2 MG, QD
     Route: 048
     Dates: start: 20161216, end: 20161216
  31. UPTRAVI [Suspect]
     Active Substance: SELEXIPAG
     Dosage: 0.26 MG, QD
     Route: 048
     Dates: start: 20161219, end: 20161219
  32. UPTRAVI [Suspect]
     Active Substance: SELEXIPAG
     Dosage: 0.38 MG, QD
     Route: 048
     Dates: start: 20170111, end: 20170111
  33. MEYLON [Concomitant]
     Active Substance: SODIUM BICARBONATE
  34. UPTRAVI [Suspect]
     Active Substance: SELEXIPAG
     Dosage: 0.016 MG, QD
     Route: 048
     Dates: start: 20161128, end: 20161128
  35. UPTRAVI [Suspect]
     Active Substance: SELEXIPAG
     Dosage: 0.34 MG, QD
     Route: 048
     Dates: start: 20161230, end: 20170101
  36. UPTRAVI [Suspect]
     Active Substance: SELEXIPAG
     Dosage: 0.36 MG, QD
     Route: 048
     Dates: start: 20170102, end: 20170110
  37. MUCODYNE [Concomitant]
     Active Substance: CARBOCYSTEINE
  38. MILRILA [Concomitant]
     Active Substance: MILRINONE

REACTIONS (4)
  - Condition aggravated [Fatal]
  - Hypotension [Not Recovered/Not Resolved]
  - Pulmonary arterial hypertension [Fatal]
  - Brain natriuretic peptide increased [Fatal]

NARRATIVE: CASE EVENT DATE: 20161219
